FAERS Safety Report 9193870 (Version 1)
Quarter: 2013Q1

REPORT INFORMATION
  Report Type: Spontaneous
  Country: US (occurrence: US)
  Receive Date: 20130327
  Receipt Date: 20130327
  Transmission Date: 20140127
  Serious: Yes (Death)
  Sender: FDA-Public Use
  Company Number: US-INCYTE CORPORATION-2013IN000274

PATIENT
  Age: 71 Year
  Sex: Male

DRUGS (7)
  1. JAKAFI [Suspect]
     Indication: MYELOFIBROSIS
     Dosage: 15 MG, BID
     Route: 048
     Dates: start: 201204
  2. JAKAFI [Suspect]
     Dosage: 10 MG, BID
     Route: 048
  3. PAXIL [Concomitant]
  4. DILANTIN [Concomitant]
  5. KEPPRA [Concomitant]
  6. FUROSEMIDE [Concomitant]
  7. PROTONIX [Concomitant]

REACTIONS (2)
  - Death [Fatal]
  - Splenomegaly [Unknown]
